FAERS Safety Report 24262794 (Version 3)
Quarter: 2024Q4

REPORT INFORMATION
  Report Type: Spontaneous
  Country: US (occurrence: US)
  Receive Date: 20240829
  Receipt Date: 20241115
  Transmission Date: 20250115
  Serious: No
  Sender: INCYTE
  Company Number: US-INCYTE CORPORATION-2024IN007984

PATIENT

DRUGS (2)
  1. OPZELURA [Suspect]
     Active Substance: RUXOLITINIB PHOSPHATE
     Indication: Vitiligo
     Dosage: 60 GRAM EVERY COUPLE OF DAYS
     Route: 061
  2. OPZELURA [Suspect]
     Active Substance: RUXOLITINIB PHOSPHATE
     Indication: Eczema
     Dosage: UNK
     Route: 065

REACTIONS (6)
  - Vitiligo [Unknown]
  - Eczema [Unknown]
  - Dry skin [Unknown]
  - Product temperature excursion issue [Unknown]
  - Product physical consistency issue [Unknown]
  - Off label use [Unknown]
